FAERS Safety Report 5814621-2 (Version None)
Quarter: 2008Q3

REPORT INFORMATION
  Report Type: 
  Country: None (occurrence: None)
  Receive Date: 20080718
  Receipt Date: 20070604
  Transmission Date: 20090109
  Serious: No
  Sender: FDA-Public Use
  Company Number: US-KINGPHARMUSA00001-K200700678

PATIENT

DRUGS (3)
  1. LEVOXYL [Suspect]
     Indication: HYPOTHYROIDISM
     Dosage: 150 MCG, QD
     Route: 048
     Dates: start: 20070307
  2. PROZAC [Concomitant]
     Dosage: UNK, QD
     Route: 048
  3. VITAMIN TAB [Concomitant]

REACTIONS (1)
  - ALOPECIA [None]
